FAERS Safety Report 13005450 (Version 2)
Quarter: 2017Q1

REPORT INFORMATION
  Report Type: Spontaneous
  Country: JP (occurrence: JP)
  Receive Date: 20161207
  Receipt Date: 20170103
  Transmission Date: 20170428
  Serious: Yes (Other)
  Sender: FDA-Public Use
  Company Number: JP-ELI_LILLY_AND_COMPANY-JP201612000131

PATIENT
  Age: 68 Year
  Sex: Male

DRUGS (2)
  1. ERBITUX [Suspect]
     Active Substance: CETUXIMAB
     Indication: LIP AND/OR ORAL CAVITY CANCER
     Dosage: 20 DF, UNKNOWN
     Route: 042
     Dates: start: 201503
  2. PACLITAXEL. [Concomitant]
     Active Substance: PACLITAXEL
     Indication: LIP AND/OR ORAL CAVITY CANCER
     Dosage: UNK UNK, UNKNOWN
     Route: 065
     Dates: start: 201503

REACTIONS (3)
  - Pneumothorax [Unknown]
  - Cancer pain [Unknown]
  - Off label use [Unknown]

NARRATIVE: CASE EVENT DATE: 201603
